FAERS Safety Report 9458580 (Version 1)
Quarter: 2013Q3

REPORT INFORMATION
  Report Type: Spontaneous
  Country: US (occurrence: None)
  Receive Date: 20130813
  Receipt Date: 20130813
  Transmission Date: 20140515
  Serious: Yes (Hospitalization)
  Sender: FDA-Public Use
  Company Number: None

PATIENT
  Age: 78 Year
  Sex: Female
  Weight: 69.1 kg

DRUGS (1)
  1. CIMZIA [Suspect]
     Indication: RHEUMATOID ARTHRITIS
     Dosage: 400 MGS Q 4 WKS 057
     Dates: start: 200909, end: 20130507

REACTIONS (5)
  - Basal cell carcinoma [None]
  - Chest pain [None]
  - Loss of consciousness [None]
  - Myocardial infarction [None]
  - Cataract [None]
